FAERS Safety Report 4543165-3 (Version None)
Quarter: 2004Q4

REPORT INFORMATION
  Report Type: 
  Country: None (occurrence: None)
  Receive Date: 20041229
  Receipt Date: 20041214
  Transmission Date: 20050328
  Serious: Yes (Hospitalization)
  Sender: FDA-Public Use
  Company Number: 2004AP06276

PATIENT
  Age: 92 Year
  Sex: Female

DRUGS (2)
  1. CRESTOR [Suspect]
     Dosage: 10 MG DAILY PO
     Route: 048
     Dates: start: 20040801, end: 20041214
  2. INSULIN [Concomitant]

REACTIONS (4)
  - DIFFICULTY IN WALKING [None]
  - MYOSITIS [None]
  - PAIN IN EXTREMITY [None]
  - URINE OUTPUT DECREASED [None]
